FAERS Safety Report 25650008 (Version 1)
Quarter: 2025Q3

REPORT INFORMATION
  Report Type: Spontaneous
  Country: US (occurrence: US)
  Receive Date: 20250806
  Receipt Date: 20250806
  Transmission Date: 20251020
  Serious: No
  Sender: ABBVIE
  Company Number: US-ABBVIE-6402942

PATIENT

DRUGS (2)
  1. RINVOQ [Suspect]
     Active Substance: UPADACITINIB
     Indication: Product used for unknown indication
     Route: 048
  2. LEFLUNOMIDE [Concomitant]
     Active Substance: LEFLUNOMIDE
     Indication: Product used for unknown indication

REACTIONS (3)
  - Infection reactivation [Unknown]
  - Small fibre neuropathy [Unknown]
  - Drug ineffective [Unknown]
